FAERS Safety Report 5088471-1 (Version None)
Quarter: 2006Q3

REPORT INFORMATION
  Report Type: 
  Country: None (occurrence: None)
  Receive Date: 20060823
  Receipt Date: 20060823
  Transmission Date: 20061208
  Serious: Yes (Other)
  Sender: FDA-Public Use
  Company Number: None

PATIENT
  Sex: Female
  Weight: 61.2356 kg

DRUGS (3)
  1. BONIVA [Suspect]
     Indication: OSTEOPOROSIS
     Dosage: 1 TABLET   MONTHLY
     Dates: start: 20060501
  2. BONIVA [Suspect]
     Indication: OSTEOPOROSIS
     Dosage: 1 TABLET   MONTHLY
     Dates: start: 20060601
  3. BONIVA [Suspect]
     Indication: OSTEOPOROSIS
     Dosage: 1 TABLET   MONTHLY
     Dates: start: 20060701

REACTIONS (9)
  - ARTHRALGIA [None]
  - BALANCE DISORDER [None]
  - DIZZINESS [None]
  - DYSGRAPHIA [None]
  - DYSPNOEA [None]
  - FATIGUE [None]
  - MOTOR DYSFUNCTION [None]
  - RASH [None]
  - THINKING ABNORMAL [None]
